FAERS Safety Report 7149454-0 (Version None)
Quarter: 2010Q4

REPORT INFORMATION
  Report Type: 
  Country: None (occurrence: None)
  Receive Date: 20101209
  Receipt Date: 20101123
  Transmission Date: 20110411
  Serious: No
  Sender: FDA-Public Use
  Company Number: US-PFIZER INC-2010160495

PATIENT
  Sex: Male

DRUGS (3)
  1. ADVIL [Suspect]
     Indication: BACK PAIN
     Route: 048
  2. ADVIL [Suspect]
     Indication: TOOTHACHE
  3. ALEVE (CAPLET) [Concomitant]
     Route: 048

REACTIONS (1)
  - DRUG INEFFECTIVE [None]
